FAERS Safety Report 8383427 (Version 2)
Quarter: 2012Q4

REPORT INFORMATION
  Report Type: 
  Country: EC (occurrence: EC)
  Receive Date: 20120201
  Receipt Date: 20121005
  Transmission Date: 20130627
  Serious: No
  Sender: FDA-Public Use
  Company Number: EC-GLAXOSMITHKLINE-A0964046A

PATIENT
  Age: 19 Year
  Sex: Female

DRUGS (1)
  1. LAMICTAL [Suspect]
     Indication: EPILEPSY
     Dosage: 50MG Per day
     Route: 048

REACTIONS (3)
  - Cyanosis [Recovering/Resolving]
  - Somnolence [Unknown]
  - Fatigue [Recovering/Resolving]
